FAERS Safety Report 5670879-4 (Version None)
Quarter: 2008Q1

REPORT INFORMATION
  Report Type: 
  Country: None (occurrence: None)
  Receive Date: 20080318
  Receipt Date: 20080229
  Transmission Date: 20080703
  Serious: Yes (Congenital Anomaly)
  Sender: FDA-Public Use
  Company Number: A0678483A

PATIENT
  Sex: Male

DRUGS (3)
  1. PAXIL [Suspect]
     Indication: FATIGUE
     Dosage: 20MG PER DAY
     Dates: start: 19990306, end: 19991006
  2. VITAMIN TAB [Concomitant]
  3. PROZAC [Concomitant]

REACTIONS (3)
  - DRUG EXPOSURE DURING PREGNANCY [None]
  - PERSISTENT FOETAL CIRCULATION [None]
  - TRANSPOSITION OF THE GREAT VESSELS [None]
